FAERS Safety Report 7014342-7 (Version None)
Quarter: 2010Q3

REPORT INFORMATION
  Report Type: 
  Country: None (occurrence: None)
  Receive Date: 20100924
  Receipt Date: 20100924
  Transmission Date: 20110219
  Serious: Yes (Hospitalization)
  Sender: FDA-Public Use
  Company Number: None

PATIENT
  Age: 31 Year
  Sex: Male

DRUGS (1)
  1. MELOXICAM [Suspect]
     Indication: PAIN
     Dosage: 7.5MG DAILY PO
     Route: 048

REACTIONS (1)
  - GASTROINTESTINAL HAEMORRHAGE [None]
